FAERS Safety Report 14374574 (Version 1)
Quarter: 2018Q1

REPORT INFORMATION
  Report Type: Spontaneous
  Country: US (occurrence: US)
  Receive Date: 20180111
  Receipt Date: 20180111
  Transmission Date: 20180509
  Serious: No
  Sender: FDA-Public Use
  Company Number: US-SUN PHARMACEUTICAL INDUSTRIES LTD-2017US-140002

PATIENT
  Sex: Female

DRUGS (1)
  1. HALOG [Suspect]
     Active Substance: HALCINONIDE
     Indication: SKIN IRRITATION
     Route: 065

REACTIONS (1)
  - Drug ineffective [Unknown]
